FAERS Safety Report 8330156-X (Version None)
Quarter: 2012Q2

REPORT INFORMATION
  Report Type: 
  Country: None (occurrence: None)
  Receive Date: 20120425
  Receipt Date: 20120412
  Transmission Date: 20120825
  Serious: Yes (Hospitalization)
  Sender: FDA-Public Use
  Company Number: AECAN201200188

PATIENT
  Age: 54 Year
  Sex: Female

DRUGS (4)
  1. PROLASTIN-C [Suspect]
     Indication: ALPHA-1 ANTI-TRYPSIN DEFICIENCY
     Dosage: 3000 MG;QW;IV
     Route: 042
     Dates: start: 20120306, end: 20120411
  2. OXYCONTIN [Concomitant]
  3. ALBUTEROL [Concomitant]
  4. PERCOCET [Concomitant]

REACTIONS (3)
  - DEEP VEIN THROMBOSIS [None]
  - NASOPHARYNGITIS [None]
  - PNEUMOTHORAX [None]
